FAERS Safety Report 20240012 (Version 1)
Quarter: 2021Q4

REPORT INFORMATION
  Report Type: Report from Study
  Country: CN (occurrence: CN)
  Receive Date: 20211228
  Receipt Date: 20211228
  Transmission Date: 20220303
  Serious: Yes (Other)
  Sender: FDA-Public Use
  Company Number: CN-BRISTOL-MYERS SQUIBB COMPANY-BMS-2021-012565

PATIENT
  Age: 75 Year
  Sex: Male

DRUGS (2)
  1. NIVOLUMAB [Suspect]
     Active Substance: NIVOLUMAB
     Indication: Non-small cell lung cancer
     Dosage: 140 MILLIGRAM, Q2WK
     Route: 041
     Dates: start: 20190514
  2. NIVOLUMAB [Suspect]
     Active Substance: NIVOLUMAB
     Dosage: 140 MILLIGRAM, Q2WK
     Route: 041
     Dates: start: 2021

REACTIONS (2)
  - Coronary artery disease [Unknown]
  - Nasopharyngitis [Unknown]

NARRATIVE: CASE EVENT DATE: 20210901
